FAERS Safety Report 11079992 (Version 1)
Quarter: 2015Q2

REPORT INFORMATION
  Report Type: Spontaneous
  Country: CH (occurrence: CH)
  Receive Date: 20150430
  Receipt Date: 20150430
  Transmission Date: 20150821
  Serious: Yes (Life-Threatening, Hospitalization, Other)
  Sender: FDA-Public Use
  Company Number: CH-ASTRAZENECA-2015SE38047

PATIENT
  Age: 25242 Day
  Sex: Male
  Weight: 75 kg

DRUGS (13)
  1. BELOC ZOK [Suspect]
     Active Substance: METOPROLOL SUCCINATE
     Indication: ATRIAL FLUTTER
     Route: 048
  2. DISOPRIVAN [Concomitant]
     Active Substance: PROPOFOL
     Dates: start: 20150408, end: 20150408
  3. TRACURON [Concomitant]
     Dates: start: 20150408, end: 20150408
  4. CELLCEPT [Concomitant]
     Active Substance: MYCOPHENOLATE MOFETIL\MYCOPHENOLATE MOFETIL HYDROCHLORIDE
     Indication: PROPHYLAXIS AGAINST TRANSPLANT REJECTION
     Route: 048
  5. ZYLORIC [Concomitant]
     Active Substance: ALLOPURINOL
     Route: 048
  6. ASPIRINE [Concomitant]
     Active Substance: ASPIRIN
     Route: 048
  7. ROBINUL-NEOSTIGMINE [Suspect]
     Active Substance: GLYCOPYRROLATE\NEOSTIGMINE
     Indication: NEUROMUSCULAR BLOCKADE REVERSAL
     Route: 040
     Dates: start: 20150408, end: 20150408
  8. SINTROM [Concomitant]
     Active Substance: ACENOCOUMAROL
     Indication: AORTIC VALVE REPLACEMENT
     Route: 048
     Dates: end: 201504
  9. TOREM [Concomitant]
     Active Substance: TORSEMIDE
     Indication: CHRONIC KIDNEY DISEASE
     Route: 048
  10. PERFALGAN 1G INFUSIONSLOESUNG [Concomitant]
     Dates: start: 20150408, end: 20150408
  11. NEORAL [Concomitant]
     Active Substance: CYCLOSPORINE
     Indication: PROPHYLAXIS AGAINST TRANSPLANT REJECTION
     Route: 048
  12. SEVOFLURANE. [Concomitant]
     Active Substance: SEVOFLURANE
     Dates: start: 20150408, end: 20150408
  13. ZINACEF [Concomitant]
     Active Substance: CEFUROXIME SODIUM
     Dates: start: 20150408, end: 20150408

REACTIONS (8)
  - Chronic kidney disease [Unknown]
  - Bradycardia [Recovered/Resolved]
  - Syncope [Unknown]
  - Cardiac arrest [Recovered/Resolved]
  - Ejection fraction decreased [Unknown]
  - Hypotension [Recovered/Resolved]
  - Tachycardia [Unknown]
  - Blood potassium increased [Unknown]

NARRATIVE: CASE EVENT DATE: 20150408
